FAERS Safety Report 4827829-X (Version None)
Quarter: 2005Q4

REPORT INFORMATION
  Report Type: 
  Country: None (occurrence: None)
  Receive Date: 20051114
  Receipt Date: 20051114
  Transmission Date: 20060501
  Serious: Yes (Other)
  Sender: FDA-Public Use
  Company Number: None

PATIENT
  Age: 14 Year
  Sex: Male
  Weight: 38.5557 kg

DRUGS (2)
  1. BUPROPION HCL [Suspect]
     Indication: ATTENTION DEFICIT/HYPERACTIVITY DISORDER
     Dosage: 100 MG ONCE PER DAY PO
     Route: 048
     Dates: start: 20051113, end: 20051113
  2. BUPROPION HCL [Suspect]
     Indication: DEPRESSION
     Dosage: 100 MG ONCE PER DAY PO
     Route: 048
     Dates: start: 20051113, end: 20051113

REACTIONS (5)
  - ANGER [None]
  - DIZZINESS [None]
  - EMOTIONAL DISORDER [None]
  - IRRITABILITY [None]
  - TEARFULNESS [None]
